FAERS Safety Report 16772621 (Version 2)
Quarter: 2019Q4

REPORT INFORMATION
  Report Type: Spontaneous
  Country: US (occurrence: US)
  Receive Date: 20190904
  Receipt Date: 20191016
  Transmission Date: 20200122
  Serious: Yes (Other)
  Sender: FDA-Public Use
  Company Number: US-EX USA HOLDINGS-EXHL20192374

PATIENT
  Age: 16 Year
  Sex: Female
  Weight: 58.7 kg

DRUGS (1)
  1. BENZNIDAZOLE. [Suspect]
     Active Substance: BENZNIDAZOLE
     Indication: AMERICAN TRYPANOSOMIASIS
     Dosage: 2 TABLETS
     Route: 048
     Dates: start: 201908, end: 201908

REACTIONS (4)
  - Drug hypersensitivity [Recovered/Resolved]
  - Intentional product use issue [None]
  - Rash [Recovered/Resolved]
  - Acute generalised exanthematous pustulosis [Recovered/Resolved]

NARRATIVE: CASE EVENT DATE: 20190810
